FAERS Safety Report 6377255-X (Version None)
Quarter: 2009Q3

REPORT INFORMATION
  Report Type: 
  Country: None (occurrence: None)
  Receive Date: 20090925
  Receipt Date: 20090921
  Transmission Date: 20100115
  Serious: Yes (Other)
  Sender: FDA-Public Use
  Company Number: D0062946A

PATIENT
  Age: 35 Year
  Sex: Female

DRUGS (2)
  1. SUMATRIPTAN SUCCINATE [Suspect]
     Dosage: 100MG PER DAY
     Route: 065
  2. DICLOFENAC [Concomitant]
     Dosage: 100MG PER DAY
     Route: 065

REACTIONS (2)
  - COLITIS ISCHAEMIC [None]
  - COLITIS ULCERATIVE [None]
